FAERS Safety Report 18501293 (Version 5)
Quarter: 2022Q1

REPORT INFORMATION
  Report Type: Report from Study
  Country: CA (occurrence: CA)
  Receive Date: 20201113
  Receipt Date: 20220303
  Transmission Date: 20220424
  Serious: Yes (Hospitalization, Other)
  Sender: FDA-Public Use
  Company Number: PHHY2017CA130074

PATIENT
  Age: 70 Year
  Sex: Female

DRUGS (6)
  1. SANDOSTATIN LAR DEPOT [Suspect]
     Active Substance: OCTREOTIDE ACETATE
     Indication: Carcinoid tumour
     Dosage: 30 MG, Q4W (EVERY 4 WEEKS)
     Route: 030
     Dates: start: 20170911
  2. SANDOSTATIN LAR DEPOT [Suspect]
     Active Substance: OCTREOTIDE ACETATE
  3. SANDOSTATIN LAR DEPOT [Suspect]
     Active Substance: OCTREOTIDE ACETATE
  4. SANDOSTATIN [Suspect]
     Active Substance: OCTREOTIDE ACETATE
     Indication: Carcinoid tumour
     Dosage: TEST DOSE
     Route: 058
     Dates: start: 20170825, end: 20170825
  5. SANDOSTATIN [Suspect]
     Active Substance: OCTREOTIDE ACETATE
  6. SANDOSTATIN [Suspect]
     Active Substance: OCTREOTIDE ACETATE

REACTIONS (19)
  - Blood pressure systolic increased [Unknown]
  - Intestinal obstruction [Unknown]
  - Diarrhoea [Unknown]
  - Nausea [Unknown]
  - Decreased appetite [Unknown]
  - Blood pressure increased [Unknown]
  - Carcinoid tumour [Unknown]
  - Malignant neoplasm progression [Unknown]
  - Weight increased [Unknown]
  - Arthralgia [Unknown]
  - Joint injury [Unknown]
  - Chills [Recovered/Resolved]
  - Vaginal haemorrhage [Unknown]
  - Uterine leiomyoma [Unknown]
  - Blood glucose increased [Unknown]
  - Abdominal distension [Unknown]
  - Flatulence [Unknown]
  - Alopecia [Unknown]
  - Nervousness [Unknown]

NARRATIVE: CASE EVENT DATE: 20170911
